FAERS Safety Report 8978343 (Version 1)
Quarter: 2012Q4

REPORT INFORMATION
  Report Type: Spontaneous
  Country: US (occurrence: None)
  Receive Date: 20121218
  Receipt Date: 20121218
  Transmission Date: 20130627
  Serious: No
  Sender: FDA-Public Use
  Company Number: None

PATIENT
  Age: 85 Year
  Sex: Female
  Weight: 44 kg

DRUGS (1)
  1. PROLIA [Suspect]
     Indication: OSTEOPOROSIS
     Dosage: 2x year sc
     Route: 058
     Dates: start: 201204, end: 20121022

REACTIONS (4)
  - Injection site inflammation [None]
  - Injection site haemorrhage [None]
  - Injection site swelling [None]
  - Injection site pain [None]
